FAERS Safety Report 12783560 (Version 1)
Quarter: 2016Q3

REPORT INFORMATION
  Report Type: Spontaneous
  Country: US (occurrence: US)
  Receive Date: 20160927
  Receipt Date: 20160927
  Transmission Date: 20161109
  Serious: Yes (Other)
  Sender: FDA-Public Use
  Company Number: None

PATIENT
  Sex: Male
  Weight: 51.71 kg

DRUGS (1)
  1. HYOSCYAMINE. [Suspect]
     Active Substance: HYOSCYAMINE
     Indication: IRRITABLE BOWEL SYNDROME
     Route: 060
     Dates: start: 20160826, end: 20160902

REACTIONS (8)
  - Vision blurred [None]
  - Dysuria [None]
  - Feeling hot [None]
  - Product use issue [None]
  - Heart rate irregular [None]
  - Vomiting [None]
  - Anxiety [None]
  - Dry mouth [None]
